FAERS Safety Report 6761707-4 (Version None)
Quarter: 2010Q2

REPORT INFORMATION
  Report Type: 
  Country: None (occurrence: None)
  Receive Date: 20100426
  Receipt Date: 20100412
  Transmission Date: 20101027
  Serious: Yes (Life-Threatening, Hospitalization)
  Sender: FDA-Public Use
  Company Number: 2010022455

PATIENT
  Sex: Male

DRUGS (15)
  1. HAEMATE P (ANTIHEMOPHILIC FACTOR (HUMAN) VWF, DRIED PASTEURIZED) [Suspect]
     Indication: IMMUNOSUPPRESSANT DRUG THERAPY
     Dosage: 3000 IU, 20 ML / MIN, 3000 IU, 3000 IU, 3000 IU, 5000 IU, 20 ML/MIN, 5000 IU, 300 IU, 3000 IU, 3000
     Route: 042
  2. FEBIA (FACTOR VIII (ANTIHAEMOPHILIC FACTOR)) [Suspect]
     Dosage: 2000 IU, 4000 IU, 4000 IU, 2000 IU
     Route: 042
     Dates: start: 20070725
  3. FEBIA (FACTOR VIII (ANTIHAEMOPHILIC FACTOR)) [Suspect]
     Dosage: 2000 IU, 4000 IU, 4000 IU, 2000 IU
     Route: 042
     Dates: start: 20070905
  4. FEBIA (FACTOR VIII (ANTIHAEMOPHILIC FACTOR)) [Suspect]
     Dosage: 2000 IU, 4000 IU, 4000 IU, 2000 IU
     Route: 042
     Dates: start: 20080621
  5. FEBIA (FACTOR VIII (ANTIHAEMOPHILIC FACTOR)) [Suspect]
     Dosage: 2000 IU, 4000 IU, 4000 IU, 2000 IU
     Route: 042
     Dates: start: 20080819
  6. NOVOSEVEN [Suspect]
     Route: 042
     Dates: start: 20090213
  7. NOVOSEVEN [Suspect]
     Route: 042
     Dates: start: 20090223
  8. NOVOSEVEN [Suspect]
     Route: 042
     Dates: start: 20090411
  9. HAEMATE P (ANTIHEMOPHILIC FACTOR (HUMAN) VWF, DRIED PASTEURIZED) [Suspect]
  10. HAEMATE P (ANTIHEMOPHILIC FACTOR (HUMAN) VWF, DRIED PASTEURIZED) [Suspect]
  11. HAEMATE P (ANTIHEMOPHILIC FACTOR (HUMAN) VWF, DRIED PASTEURIZED) [Suspect]
  12. HAEMATE P (ANTIHEMOPHILIC FACTOR (HUMAN) VWF, DRIED PASTEURIZED) [Suspect]
  13. HAEMATE P (ANTIHEMOPHILIC FACTOR (HUMAN) VWF, DRIED PASTEURIZED) [Suspect]
  14. HAEMATE P (ANTIHEMOPHILIC FACTOR (HUMAN) VWF, DRIED PASTEURIZED) [Suspect]
  15. HAEMATE P (ANTIHEMOPHILIC FACTOR (HUMAN) VWF, DRIED PASTEURIZED) [Suspect]

REACTIONS (3)
  - ENDOCARDITIS [None]
  - HAEMARTHROSIS [None]
  - HAEMATOMA [None]
